FAERS Safety Report 23916501 (Version 1)
Quarter: 2024Q2

REPORT INFORMATION
  Report Type: Spontaneous
  Country: PL (occurrence: PL)
  Receive Date: 20240529
  Receipt Date: 20240529
  Transmission Date: 20240716
  Serious: Yes (Other)
  Sender: FDA-Public Use
  Company Number: None

PATIENT
  Sex: Female

DRUGS (2)
  1. PROTOPIC [Suspect]
     Active Substance: TACROLIMUS
     Indication: Product used for unknown indication
     Dosage: PROTOPIC 0,1%
  2. PROTOPIC [Suspect]
     Active Substance: TACROLIMUS
     Indication: Product used for unknown indication
     Dosage: PROTOPIC 0,1%

REACTIONS (5)
  - Pruritus [Unknown]
  - Erythema [Unknown]
  - Formication [Unknown]
  - Skin burning sensation [Unknown]
  - Feeling hot [Unknown]
